FAERS Safety Report 6087635-8 (Version None)
Quarter: 2009Q1

REPORT INFORMATION
  Report Type: 
  Country: None (occurrence: None)
  Receive Date: 20090223
  Receipt Date: 20090212
  Transmission Date: 20090719
  Serious: Yes (Other)
  Sender: FDA-Public Use
  Company Number: PHHY2009DE01635

PATIENT
  Sex: Female

DRUGS (2)
  1. TEGRETOL-XR [Suspect]
     Indication: EPILEPSY
     Dosage: 800 MG/DAY
     Route: 048
     Dates: start: 20060101
  2. PLANT ALKALOIDS AND OTHER NATURAL PRODUCTS [Interacting]

REACTIONS (2)
  - DRUG INTERACTION [None]
  - EPILEPSY [None]
